FAERS Safety Report 6524809-3 (Version None)
Quarter: 2010Q1

REPORT INFORMATION
  Report Type: 
  Country: None (occurrence: None)
  Receive Date: 20100104
  Receipt Date: 20091216
  Transmission Date: 20100710
  Serious: No
  Sender: FDA-Public Use
  Company Number: US-B.I. PHARMACEUTICALS,INC./RIDGEFIELD-2009-BP-14537BP

PATIENT
  Sex: Female

DRUGS (2)
  1. SPIRIVA [Suspect]
     Dates: start: 20080701
  2. SYMBICORT [Suspect]
     Dates: start: 20091210

REACTIONS (3)
  - COUGH [None]
  - DYSPNOEA [None]
  - PRODUCTIVE COUGH [None]
